FAERS Safety Report 23612806 (Version 1)
Quarter: 2024Q1

REPORT INFORMATION
  Report Type: Spontaneous
  Country: JP (occurrence: JP)
  Receive Date: 20240308
  Receipt Date: 20240308
  Transmission Date: 20240410
  Serious: Yes (Hospitalization, Other)
  Sender: FDA-Public Use
  Company Number: JP-BIOVITRUM-2024-JP-003518

PATIENT

DRUGS (1)
  1. EMPAVELI [Suspect]
     Active Substance: PEGCETACOPLAN
     Indication: Blood lactate dehydrogenase
     Dosage: TWICE/WEEK
     Route: 058

REACTIONS (2)
  - Haemolysis [Not Recovered/Not Resolved]
  - Influenza [Not Recovered/Not Resolved]
